FAERS Safety Report 18591223 (Version 1)
Quarter: 2020Q4

REPORT INFORMATION
  Report Type: Spontaneous
  Country: FI (occurrence: FI)
  Receive Date: 20201208
  Receipt Date: 20201208
  Transmission Date: 20210114
  Serious: Yes (Other)
  Sender: FDA-Public Use
  Company Number: FI-PFIZER INC-2020480557

PATIENT
  Age: 86 Year
  Sex: Female

DRUGS (7)
  1. SERENASE [HALOPERIDOL] [Suspect]
     Active Substance: HALOPERIDOL
     Indication: PSYCHOTIC DISORDER
     Dosage: UNK
  2. IMOVANE [Suspect]
     Active Substance: ZOPICLONE
     Indication: PSYCHOTIC DISORDER
     Dosage: UNK
  3. TEMESTA (LORAZEPAM) [Suspect]
     Active Substance: LORAZEPAM
     Indication: PSYCHOTIC DISORDER
     Dosage: UNK
  4. KETIPINOR [Suspect]
     Active Substance: QUETIAPINE FUMARATE
     Indication: PSYCHOTIC DISORDER
     Dosage: UNK
  5. OPAMOX [Suspect]
     Active Substance: OXAZEPAM
     Indication: PSYCHOTIC DISORDER
     Dosage: UNK
  6. IMOVANE [Suspect]
     Active Substance: ZOPICLONE
     Dosage: UNK
  7. RIVATRIL [Suspect]
     Active Substance: CLONAZEPAM
     Indication: PSYCHOTIC DISORDER
     Dosage: UNK

REACTIONS (3)
  - Dysphagia [Unknown]
  - Tardive dyskinesia [Unknown]
  - Urinary retention [Unknown]
